FAERS Safety Report 4655612-7 (Version None)
Quarter: 2005Q2

REPORT INFORMATION
  Report Type: 
  Country: None (occurrence: None)
  Receive Date: 20050505
  Receipt Date: 20050427
  Transmission Date: 20051028
  Serious: Yes (Hospitalization)
  Sender: FDA-Public Use
  Company Number: 1556

PATIENT
  Age: 19 Year
  Sex: Female
  Weight: 63.5036 kg

DRUGS (2)
  1. AMNESTEEM [Suspect]
     Indication: ACNE
     Dosage: 20MG, BID, PO
     Route: 048
     Dates: start: 20030603, end: 20040301
  2. ORAL CONTRACEPTIVE [Concomitant]

REACTIONS (3)
  - HEPATITIS ACUTE [None]
  - INFECTIOUS MONONUCLEOSIS [None]
  - SYNCOPE [None]
